FAERS Safety Report 22232485 (Version 1)
Quarter: 2023Q2

REPORT INFORMATION
  Report Type: Spontaneous
  Country: US (occurrence: None)
  Receive Date: 20230420
  Receipt Date: 20230420
  Transmission Date: 20230722
  Serious: No
  Sender: FDA-Public Use
  Company Number: US-ROCHE-3129190

PATIENT
  Age: 67 Year
  Sex: Female

DRUGS (2)
  1. ESBRIET [Suspect]
     Active Substance: PIRFENIDONE
     Indication: Idiopathic pulmonary fibrosis
     Dosage: 2 TABLETS (267MG/TAB) THREE TIMES PER DAY WITH MEALS ;ONGOING: YES
     Route: 048
     Dates: start: 20220618
  2. ESBRIET [Suspect]
     Active Substance: PIRFENIDONE
     Indication: Interstitial lung disease
     Dosage: 3TABLETS (267MG/TAB) THREE TIMES A DAY WITH MEALS
     Route: 048

REACTIONS (5)
  - Nausea [Recovering/Resolving]
  - Fatigue [Recovering/Resolving]
  - Gastrooesophageal reflux disease [Unknown]
  - Decreased appetite [Unknown]
  - Hot flush [Unknown]

NARRATIVE: CASE EVENT DATE: 20220625
